FAERS Safety Report 16545167 (Version 1)
Quarter: 2019Q3

REPORT INFORMATION
  Report Type: Spontaneous
  Country: US (occurrence: US)
  Receive Date: 20190708
  Receipt Date: 20190708
  Transmission Date: 20191004
  Serious: No
  Sender: FDA-Public Use
  Company Number: None

PATIENT
  Age: 67 Year
  Sex: Male
  Weight: 113.4 kg

DRUGS (1)
  1. NESINA [Suspect]
     Active Substance: ALOGLIPTIN BENZOATE
     Indication: RASH
     Route: 048
     Dates: start: 20190626, end: 20190707

REACTIONS (2)
  - Photosensitivity reaction [None]
  - Rash [None]

NARRATIVE: CASE EVENT DATE: 20190705
